FAERS Safety Report 10346530 (Version 2)
Quarter: 2014Q3

REPORT INFORMATION
  Report Type: Spontaneous
  Country: US (occurrence: US)
  Receive Date: 20140729
  Receipt Date: 20140806
  Transmission Date: 20150326
  Serious: No
  Sender: FDA-Public Use
  Company Number: US-009507513-1407USA000845

PATIENT
  Age: 16 Year
  Sex: Female
  Weight: 99.32 kg

DRUGS (2)
  1. NEXPLANON [Suspect]
     Active Substance: ETONOGESTREL
     Dosage: 2ND ROD
     Route: 059
     Dates: start: 20140530
  2. NEXPLANON [Suspect]
     Active Substance: ETONOGESTREL
     Indication: CONTRACEPTION
     Dosage: 68 MG, ONE ROD EVERY THREE YEARS, LEFT ARM
     Route: 059
     Dates: start: 20140110, end: 20140522

REACTIONS (3)
  - Paraesthesia [Recovered/Resolved]
  - Device breakage [Recovered/Resolved]
  - Hypoaesthesia [Recovered/Resolved]

NARRATIVE: CASE EVENT DATE: 201402
